FAERS Safety Report 14509560 (Version 1)
Quarter: 2018Q1

REPORT INFORMATION
  Report Type: Spontaneous
  Country: GB (occurrence: GB)
  Receive Date: 20180209
  Receipt Date: 20180209
  Transmission Date: 20180509
  Serious: Yes (Other)
  Sender: FDA-Public Use
  Company Number: GB-AUROBINDO-AUR-APL-2018-005388

PATIENT
  Age: 52 Year
  Sex: Male
  Weight: 90.26 kg

DRUGS (1)
  1. METRONIDAZOLE TABLET [Suspect]
     Active Substance: METRONIDAZOLE
     Indication: ORAL DISORDER
     Dosage: 1200 MG, UNK
     Route: 048
     Dates: start: 20180111, end: 20180111

REACTIONS (4)
  - Eye pain [Recovered/Resolved]
  - Hangover [Unknown]
  - Musculoskeletal stiffness [Recovered/Resolved]
  - Headache [Recovered/Resolved]

NARRATIVE: CASE EVENT DATE: 20180111
